FAERS Safety Report 20356731 (Version 1)
Quarter: 2022Q1

REPORT INFORMATION
  Report Type: Spontaneous
  Country: US (occurrence: None)
  Receive Date: 20220120
  Receipt Date: 20220120
  Transmission Date: 20220423
  Serious: Yes (Other)
  Sender: FDA-Public Use
  Company Number: 2022A023902

PATIENT
  Age: 63 Year
  Sex: Female

DRUGS (4)
  1. BRILINTA [Suspect]
     Active Substance: TICAGRELOR
     Indication: Product used for unknown indication
     Dosage: UNKNOWN
     Route: 048
  2. TYVASO [Suspect]
     Active Substance: TREPROSTINIL
     Indication: Pulmonary arterial hypertension
     Dosage: 54-72 UG (9-12 BREATHS), FOUR TIMES A DAY
     Route: 055
     Dates: start: 20200522
  3. DILTIAZEM [Concomitant]
     Active Substance: DILTIAZEM
  4. LIPITOR [Concomitant]
     Active Substance: ATORVASTATIN CALCIUM

REACTIONS (6)
  - Sarcoidosis [Unknown]
  - Anaemia [Unknown]
  - Pleurisy [Unknown]
  - Alopecia [Not Recovered/Not Resolved]
  - Vitamin D decreased [Unknown]
  - Epistaxis [Unknown]
